FAERS Safety Report 8317839-2 (Version None)
Quarter: 2012Q2

REPORT INFORMATION
  Report Type: 
  Country: None (occurrence: None)
  Receive Date: 20120427
  Receipt Date: 20120418
  Transmission Date: 20120825
  Serious: Yes (Death)
  Sender: FDA-Public Use
  Company Number: BE-CELGENEUS-013-50794-12042170

PATIENT
  Age: 86 Year

DRUGS (2)
  1. VIDAZA [Suspect]
     Dosage: 125 MILLIGRAM
     Route: 065
     Dates: start: 20110103
  2. VIDAZA [Suspect]
     Dosage: 123 MILLIGRAM
     Route: 065
     Dates: start: 20110404

REACTIONS (1)
  - DISEASE PROGRESSION [None]
